FAERS Safety Report 14225547 (Version 1)
Quarter: 2017Q4

REPORT INFORMATION
  Report Type: Spontaneous
  Country: US (occurrence: US)
  Receive Date: 20171127
  Receipt Date: 20171127
  Transmission Date: 20180321
  Serious: No
  Sender: FDA-Public Use
  Company Number: US-TEVA-805349ACC

PATIENT
  Sex: Male

DRUGS (2)
  1. HYDROCORTISONE 1PERCENT [Suspect]
     Active Substance: HYDROCORTISONE
     Indication: PSORIASIS
  2. HYDROCORTISONE 1PERCENT [Suspect]
     Active Substance: HYDROCORTISONE
     Indication: DRY SKIN
     Route: 062
     Dates: start: 201708, end: 20170901

REACTIONS (3)
  - Application site burn [Unknown]
  - Pruritus [Unknown]
  - Dry skin [Unknown]

NARRATIVE: CASE EVENT DATE: 2017
